FAERS Safety Report 14519115 (Version 3)
Quarter: 2022Q4

REPORT INFORMATION
  Report Type: Spontaneous
  Country: US (occurrence: US)
  Receive Date: 20180212
  Receipt Date: 20221031
  Transmission Date: 20230113
  Serious: No
  Sender: FDA-Public Use
  Company Number: US-JNJFOC-20180202186

PATIENT
  Sex: Male

DRUGS (13)
  1. RISPERDAL [Suspect]
     Active Substance: RISPERIDONE
     Indication: Post-traumatic stress disorder
     Dosage: VARYING DOSE OF 0.25 MG, 0.5 MG AND 1 MG
     Route: 048
     Dates: start: 20080430
  2. RISPERDAL [Suspect]
     Active Substance: RISPERIDONE
     Indication: Oppositional defiant disorder
     Route: 048
     Dates: start: 200805, end: 20080608
  3. RISPERDAL [Suspect]
     Active Substance: RISPERIDONE
     Indication: Major depression
     Dosage: VARYING DOSE OF 0.25 MG, 0.5 MG AND 1 MG
     Route: 048
     Dates: end: 20100430
  4. RISPERDAL [Suspect]
     Active Substance: RISPERIDONE
     Indication: Aggression
  5. RISPERDAL [Suspect]
     Active Substance: RISPERIDONE
     Indication: Affective disorder
  6. RISPERDAL [Suspect]
     Active Substance: RISPERIDONE
     Indication: Anger
  7. RISPERDAL [Suspect]
     Active Substance: RISPERIDONE
     Indication: Anxiety
  8. RISPERIDONE [Suspect]
     Active Substance: RISPERIDONE
     Indication: Post-traumatic stress disorder
     Dosage: VARYING DOSE OF 0.25 MG, 0.5 MG AND 1 MG
     Route: 065
     Dates: start: 20081115, end: 20100127
  9. RISPERIDONE [Suspect]
     Active Substance: RISPERIDONE
     Indication: Oppositional defiant disorder
  10. RISPERIDONE [Suspect]
     Active Substance: RISPERIDONE
     Indication: Affective disorder
  11. RISPERIDONE [Suspect]
     Active Substance: RISPERIDONE
     Indication: Aggression
  12. RISPERIDONE [Suspect]
     Active Substance: RISPERIDONE
     Indication: Anger
  13. RISPERIDONE [Suspect]
     Active Substance: RISPERIDONE
     Indication: Major depression

REACTIONS (3)
  - Sedation [Unknown]
  - Emotional distress [Unknown]
  - Gynaecomastia [Unknown]
